FAERS Safety Report 5131250-7 (Version None)
Quarter: 2006Q4

REPORT INFORMATION
  Report Type: 
  Country: None (occurrence: None)
  Receive Date: 20061020
  Receipt Date: 20060407
  Transmission Date: 20070319
  Serious: Yes (Other)
  Sender: FDA-Public Use
  Company Number: US-ABBOTT-06P-163-0330112-00

PATIENT
  Sex: Male
  Weight: 15.5 kg

DRUGS (1)
  1. OMNICEF [Suspect]
     Indication: OTITIS MEDIA
     Dosage: 250MG/5ML
     Route: 048
     Dates: start: 20060403, end: 20060405

REACTIONS (12)
  - ABNORMAL BEHAVIOUR [None]
  - BLOOD GLUCOSE INCREASED [None]
  - CONFUSIONAL STATE [None]
  - DISTURBANCE IN ATTENTION [None]
  - EOSINOPHIL COUNT INCREASED [None]
  - INCOHERENT [None]
  - MANIA [None]
  - MENTAL STATUS CHANGES [None]
  - MONOCYTE COUNT INCREASED [None]
  - POOR QUALITY SLEEP [None]
  - PSYCHOMOTOR HYPERACTIVITY [None]
  - REPETITIVE SPEECH [None]
